FAERS Safety Report 6370932-6 (Version None)
Quarter: 2009Q3

REPORT INFORMATION
  Report Type: 
  Country: None (occurrence: None)
  Receive Date: 20090923
  Receipt Date: 20080523
  Transmission Date: 20100115
  Serious: Yes (Hospitalization)
  Sender: FDA-Public Use
  Company Number: US-ASTRAZENECA-2006UW22561

PATIENT
  Age: 14101 Day
  Sex: Female
  Weight: 111.1 kg

DRUGS (17)
  1. SEROQUEL [Suspect]
     Route: 048
     Dates: start: 20040101, end: 20050801
  2. SEROQUEL [Suspect]
     Dosage: 100-600 MG
     Route: 048
     Dates: start: 20041019
  3. TRAZODONE HYDROCHLORIDE [Concomitant]
  4. NAPROXEN [Concomitant]
     Dates: start: 20041105
  5. REGLAN [Concomitant]
     Dates: start: 20041216
  6. ALBUTEROL [Concomitant]
     Dates: start: 20040919
  7. AMBIEN [Concomitant]
     Dates: start: 20040919
  8. VICODIN [Concomitant]
     Dates: start: 20050526
  9. KLONOPIN [Concomitant]
     Dates: start: 20051010
  10. GLUCOPHAGE [Concomitant]
     Dates: start: 20051019
  11. ACTOS [Concomitant]
     Dates: start: 20060213
  12. LIPITOR [Concomitant]
  13. PREDNISONE [Concomitant]
  14. TEGRETOL [Concomitant]
  15. ZOLOFT [Concomitant]
  16. ADVAIR HFA [Concomitant]
  17. ZANTAC [Concomitant]

REACTIONS (17)
  - ARTHRALGIA [None]
  - ASTHMA [None]
  - BACK PAIN [None]
  - BRONCHITIS [None]
  - CARPAL TUNNEL SYNDROME [None]
  - CHEST PAIN [None]
  - DIARRHOEA [None]
  - EAR PAIN [None]
  - EPISTAXIS [None]
  - GASTROOESOPHAGEAL REFLUX DISEASE [None]
  - HEADACHE [None]
  - HYPERGLYCAEMIA [None]
  - NECK PAIN [None]
  - ORAL CANDIDIASIS [None]
  - TOOTHACHE [None]
  - TYPE 2 DIABETES MELLITUS [None]
  - URINARY INCONTINENCE [None]
